FAERS Safety Report 21019457 (Version 1)
Quarter: 2022Q2

REPORT INFORMATION
  Report Type: Spontaneous
  Country: US (occurrence: US)
  Receive Date: 20220628
  Receipt Date: 20220628
  Transmission Date: 20220721
  Serious: No
  Sender: FDA-Public Use
  Company Number: US-JAZZ-2022-US-010391

PATIENT
  Age: 24 Year
  Sex: Female

DRUGS (4)
  1. XYREM [Suspect]
     Active Substance: SODIUM OXYBATE
     Indication: Product used for unknown indication
     Dosage: UNK UNK, BID(INITIALLY),QD LATER
     Route: 048
     Dates: start: 201701, end: 201801
  2. TRAZODONE [Concomitant]
     Active Substance: TRAZODONE HYDROCHLORIDE
     Indication: Sleep disorder
  3. HYDROXYZINE [Concomitant]
     Active Substance: HYDROXYZINE HYDROCHLORIDE
     Indication: Sleep disorder
  4. GUANFACINE [Concomitant]
     Active Substance: GUANFACINE
     Indication: Nervous system disorder

REACTIONS (8)
  - Cognitive disorder [Unknown]
  - Menstrual disorder [Unknown]
  - Sensation of foreign body [Unknown]
  - Condition aggravated [Unknown]
  - Dyspepsia [Unknown]
  - Memory impairment [Unknown]
  - Hyperhidrosis [Unknown]
  - Paranoia [Unknown]

NARRATIVE: CASE EVENT DATE: 20170501
